FAERS Safety Report 14544342 (Version 1)
Quarter: 2018Q1

REPORT INFORMATION
  Report Type: Spontaneous
  Country: US (occurrence: US)
  Receive Date: 20180215
  Receipt Date: 20180215
  Transmission Date: 20180509
  Serious: Yes (Hospitalization)
  Sender: FDA-Public Use
  Company Number: None

PATIENT
  Age: 82 Year
  Sex: Male

DRUGS (1)
  1. WARFARIN [Suspect]
     Active Substance: WARFARIN
     Indication: ATRIAL FIBRILLATION
     Route: 048
     Dates: start: 20160725, end: 20180208

REACTIONS (8)
  - Haematuria [None]
  - International normalised ratio abnormal [None]
  - Confusional state [None]
  - Overdose [None]
  - Hypophagia [None]
  - Coagulopathy [None]
  - Pancreatic cyst [None]
  - Haemorrhage [None]

NARRATIVE: CASE EVENT DATE: 20180208
